FAERS Safety Report 12712615 (Version 1)
Quarter: 2016Q3

REPORT INFORMATION
  Report Type: Spontaneous
  Country: DE (occurrence: DE)
  Receive Date: 20160902
  Receipt Date: 20160902
  Transmission Date: 20161109
  Serious: Yes (Hospitalization, Other)
  Sender: FDA-Public Use
  Company Number: DE-BIOGEN-2016BI00287342

PATIENT
  Age: 46 Year
  Sex: Female

DRUGS (1)
  1. TECFIDERA [Suspect]
     Active Substance: DIMETHYL FUMARATE
     Indication: MULTIPLE SCLEROSIS
     Route: 048
     Dates: start: 2014, end: 201602

REACTIONS (7)
  - Urinary tract infection [Recovered/Resolved]
  - Sensory disturbance [Unknown]
  - Pyelonephritis [Recovered/Resolved]
  - Bladder pain [Recovered/Resolved]
  - Flushing [Unknown]
  - Gastric disorder [Unknown]
  - Micturition urgency [Not Recovered/Not Resolved]

NARRATIVE: CASE EVENT DATE: 2014
